FAERS Safety Report 6085162-5 (Version None)
Quarter: 2009Q1

REPORT INFORMATION
  Report Type: 
  Country: None (occurrence: None)
  Receive Date: 20090220
  Receipt Date: 20090219
  Transmission Date: 20090719
  Serious: Yes (Other)
  Sender: FDA-Public Use
  Company Number: US-ASTRAZENECA-2009UW01835

PATIENT
  Sex: Female

DRUGS (3)
  1. PULMICORT-100 [Suspect]
     Indication: ASTHMA
     Dosage: 720MCG DAILY
     Route: 055
  2. PROVENTIL [Concomitant]
  3. URSOIDOL [Concomitant]

REACTIONS (2)
  - ASTHMA [None]
  - DRUG INEFFECTIVE [None]
